FAERS Safety Report 7111138-2 (Version None)
Quarter: 2010Q4

REPORT INFORMATION
  Report Type: 
  Country: None (occurrence: None)
  Receive Date: 20101118
  Receipt Date: 20091111
  Transmission Date: 20110411
  Serious: No
  Sender: FDA-Public Use
  Company Number: US-TEVA-214930USA

PATIENT
  Sex: Female
  Weight: 72.64 kg

DRUGS (3)
  1. ALBUTEROL SULFATE AUTOHALER [Suspect]
     Dosage: AS NEEDED
     Route: 055
     Dates: start: 20081201
  2. CILEST [Concomitant]
     Route: 048
  3. IBUPROFEN [Concomitant]

REACTIONS (1)
  - DIZZINESS [None]
